FAERS Safety Report 8993567 (Version 1)
Quarter: 2013Q1

REPORT INFORMATION
  Report Type: Report from Study
  Country: BR (occurrence: BR)
  Receive Date: 20130102
  Receipt Date: 20130102
  Transmission Date: 20140127
  Serious: Yes (Death, Hospitalization)
  Sender: FDA-Public Use
  Company Number: BR-BRISTOL-MYERS SQUIBB COMPANY-15213549

PATIENT
  Age: 84 Year
  Sex: Male

DRUGS (9)
  1. DASATINIB [Suspect]
     Indication: PROSTATE CANCER
     Route: 048
     Dates: start: 20100329, end: 20100724
  2. DOCETAXEL [Suspect]
     Indication: PROSTATE CANCER
     Route: 042
     Dates: start: 20100329, end: 20100719
  3. PREDNISONE [Suspect]
     Indication: PROSTATE CANCER
     Route: 048
     Dates: start: 20100329, end: 20100724
  4. CODEINE [Concomitant]
     Indication: BONE PAIN
     Route: 048
     Dates: start: 20100722, end: 20100725
  5. SERTRALINE [Concomitant]
     Route: 048
     Dates: start: 2008, end: 20100725
  6. SPIRONOLACTONE [Concomitant]
     Route: 048
     Dates: start: 20100719, end: 20100725
  7. HYDROCHLOROTHIAZIDE [Concomitant]
     Indication: HYPERTENSION
     Route: 048
  8. VALSARTAN [Concomitant]
     Indication: HYPERTENSION
     Route: 048
  9. SERTRALINE [Concomitant]
     Indication: DEPRESSION
     Route: 048

REACTIONS (4)
  - Septic shock [Fatal]
  - Renal failure acute [Fatal]
  - Dehydration [Recovered/Resolved]
  - Lung infection [Not Recovered/Not Resolved]
